FAERS Safety Report 10202612 (Version 2)
Quarter: 2014Q2

REPORT INFORMATION
  Report Type: Report from Study
  Country: NL (occurrence: NL)
  Receive Date: 20140528
  Receipt Date: 20140528
  Transmission Date: 20141212
  Serious: Yes (Other)
  Sender: FDA-Public Use
  Company Number: NL-ABBVIE-14P-114-1208613-00

PATIENT
  Age: 47 Year
  Sex: Female
  Weight: 113 kg

DRUGS (3)
  1. LUCRIN DEPOT [Suspect]
     Indication: BREAST CANCER
     Route: 058
     Dates: start: 20131203
  2. PANTOPRAZOL [Concomitant]
     Indication: GASTRIC DISORDER
     Dosage: EC
     Route: 048
  3. FLUVOXAMINE MALEATE [Concomitant]
     Indication: DEPRESSION
     Route: 048
     Dates: start: 2012

REACTIONS (3)
  - Benign neoplasm [Not Recovered/Not Resolved]
  - Injection site reaction [Recovered/Resolved]
  - Headache [Not Recovered/Not Resolved]
